FAERS Safety Report 4466672-0 (Version None)
Quarter: 2004Q4

REPORT INFORMATION
  Report Type: 
  Country: None (occurrence: None)
  Receive Date: 20041006
  Receipt Date: 20040930
  Transmission Date: 20050328
  Serious: Yes (Hospitalization)
  Sender: FDA-Public Use
  Company Number: US-JNJFOC-20041000754

PATIENT
  Sex: Female
  Weight: 44.45 kg

DRUGS (3)
  1. REMICADE [Suspect]
     Indication: CROHN'S DISEASE
     Dosage: STARTED DRUG ^SEVERAL YEARS AGO^ MOST RECENT ADMINISTRATION NOTED
     Route: 042
  2. PAIN PATCH [Concomitant]
  3. PAIN PATCH [Concomitant]
     Indication: PAIN

REACTIONS (1)
  - HYPOAESTHESIA [None]
